FAERS Safety Report 6201050-5 (Version None)
Quarter: 2009Q2

REPORT INFORMATION
  Report Type: 
  Country: None (occurrence: None)
  Receive Date: 20090526
  Receipt Date: 20090518
  Transmission Date: 20091009
  Serious: Yes (Death, Other)
  Sender: FDA-Public Use
  Company Number: DE-BRISTOL-MYERS SQUIBB COMPANY-14628028

PATIENT
  Age: 67 Year
  Sex: Female

DRUGS (13)
  1. CISPLATIN [Suspect]
     Indication: NON-HODGKIN'S LYMPHOMA
  2. CYCLOPHOSPHAMIDE [Suspect]
     Indication: NON-HODGKIN'S LYMPHOMA
  3. ETOPOSIDE [Suspect]
     Indication: NON-HODGKIN'S LYMPHOMA
  4. CARMUSTINE [Suspect]
     Indication: NON-HODGKIN'S LYMPHOMA
  5. DOXORUBICIN HCL [Suspect]
     Indication: NON-HODGKIN'S LYMPHOMA
  6. RITUXIMAB [Suspect]
     Indication: NON-HODGKIN'S LYMPHOMA
     Dosage: 2 CYCLES + R-DHAP, 6 CYCLES + R-CHOP-21
  7. CYTARABINE [Suspect]
     Indication: NON-HODGKIN'S LYMPHOMA
  8. VINCRISTINE [Suspect]
     Indication: NON-HODGKIN'S LYMPHOMA
  9. METHOTREXATE [Suspect]
     Indication: NON-HODGKIN'S LYMPHOMA
     Dosage: 1 CYCLE
  10. MELPHALAN [Suspect]
     Indication: NON-HODGKIN'S LYMPHOMA
  11. DEXAMETHASONE 4MG TAB [Suspect]
     Indication: NON-HODGKIN'S LYMPHOMA
     Dosage: 1 CYCLE OF DEXA-BEAM
  12. PREDNISOLONE [Suspect]
     Indication: NON-HODGKIN'S LYMPHOMA
  13. RADIOTHERAPY [Suspect]
     Indication: NON-HODGKIN'S LYMPHOMA
     Dosage: 1DSF= 36 GY ATLEAST IN DAILY SINGLE FRACTIONS OF 1.8 GY

REACTIONS (3)
  - ANAEMIA [None]
  - BACTERIAL SEPSIS [None]
  - LEUKOPENIA [None]
